FAERS Safety Report 8844663 (Version 2)
Quarter: 2013Q1

REPORT INFORMATION
  Report Type: Spontaneous
  Country: US (occurrence: None)
  Receive Date: 20121012
  Receipt Date: 20121031
  Transmission Date: 20140127
  Serious: Yes (Disabling)
  Sender: FDA-Public Use
  Company Number: CRC-12-477

PATIENT
  Age: 61 Year
  Sex: Female
  Weight: 74.84 kg

DRUGS (6)
  1. ALENDRONATE SODIUM TABLETS USP [Suspect]
     Indication: OSTEOPOROSIS
     Dosage: 1 TAB ONCE/WEEK; ORALLY
     Route: 048
  2. LEVAQUIN [Concomitant]
  3. CALCIUM + VIT D [Concomitant]
  4. PAXIUM [Concomitant]
  5. LORAZEPAM [Concomitant]
  6. SLEEP MEDICATIONS [Concomitant]

REACTIONS (5)
  - Pain in extremity [None]
  - Paraesthesia [None]
  - Arthritis [None]
  - Arthralgia [None]
  - Abasia [None]
